FAERS Safety Report 23789834 (Version 1)
Quarter: 2024Q2

REPORT INFORMATION
  Report Type: Spontaneous
  Country: US (occurrence: None)
  Receive Date: 20240424
  Receipt Date: 20240424
  Transmission Date: 20240715
  Serious: Yes (Hospitalization)
  Sender: FDA-Public Use
  Company Number: None

PATIENT
  Age: 96 Year
  Sex: Male

DRUGS (1)
  1. TORSEMIDE [Suspect]
     Active Substance: TORSEMIDE
     Indication: Hypervolaemia
     Dosage: FREQUENCY : DAILY;?
     Route: 048
     Dates: start: 20231227, end: 20240105

REACTIONS (1)
  - Acute kidney injury [None]

NARRATIVE: CASE EVENT DATE: 20240105
